FAERS Safety Report 8402408-6 (Version None)
Quarter: 2012Q2

REPORT INFORMATION
  Report Type: 
  Country: None (occurrence: None)
  Receive Date: 20120601
  Receipt Date: 20120523
  Transmission Date: 20120825
  Serious: Yes (Life-Threatening, Hospitalization)
  Sender: FDA-Public Use
  Company Number: JP-PFIZER INC-2011277158

PATIENT
  Age: 74 Year
  Sex: Male
  Weight: 22.676 kg

DRUGS (13)
  1. LASIX [Concomitant]
     Dosage: UNK
     Dates: start: 20100331
  2. VALSARTAN [Concomitant]
     Dosage: UNK
     Dates: start: 20100331
  3. AVASTIN [Concomitant]
     Indication: COLORECTAL CANCER
     Dosage: 300 MG/BODY
     Route: 041
     Dates: start: 20100127, end: 20100310
  4. HANP [Concomitant]
     Dosage: UNK
     Route: 051
     Dates: start: 20100330, end: 20100401
  5. IRINOTECAN HCL [Suspect]
     Dosage: 220 MG/BODY (153.8 MG/M2)
     Route: 041
     Dates: start: 20100310, end: 20100310
  6. CALCIUM LEVOFOLINATE [Concomitant]
     Indication: COLORECTAL CANCER
     Dosage: 300 MG/BODY (209.8 MG/M2)
     Route: 051
     Dates: start: 20100127, end: 20100310
  7. FLUOROURACIL [Concomitant]
     Indication: COLORECTAL CANCER
     Dosage: 500 MG/BODY (349.7 MG/M2)
     Route: 040
     Dates: start: 20100127, end: 20100310
  8. DOPAMINE HYDROCHLORIDE [Concomitant]
     Dosage: UNK
     Route: 051
     Dates: start: 20100330, end: 20100401
  9. LASIX [Concomitant]
     Dosage: UNK
     Route: 051
     Dates: start: 20100330, end: 20100330
  10. IRINOTECAN HCL [Suspect]
     Dosage: 220 MG/BODY (153.8 MG/M2)
     Route: 041
     Dates: start: 20100217, end: 20100217
  11. FLUOROURACIL [Concomitant]
     Dosage: 3500 MG/BODY/D1-2 (2447.6 MG/M2/D1-2)
     Route: 041
     Dates: start: 20100127, end: 20100310
  12. IRINOTECAN HCL [Suspect]
     Indication: COLORECTAL CANCER
     Dosage: 220 MG/BODY (153.8 MG/M2)
     Route: 041
     Dates: start: 20100127, end: 20100127
  13. ASPIRIN [Concomitant]
     Dosage: UNK
     Dates: start: 20100331

REACTIONS (1)
  - CARDIAC FAILURE [None]
